FAERS Safety Report 22962655 (Version 2)
Quarter: 2024Q1

REPORT INFORMATION
  Report Type: Spontaneous
  Country: IN (occurrence: IN)
  Receive Date: 20230920
  Receipt Date: 20240125
  Transmission Date: 20240409
  Serious: Yes (Other)
  Sender: FDA-Public Use
  Company Number: IN-PFIZER INC-PV202300095419

PATIENT
  Age: 60 Year
  Sex: Male

DRUGS (1)
  1. CRIZOTINIB [Suspect]
     Active Substance: CRIZOTINIB
     Indication: Lung neoplasm malignant
     Dosage: 250 MG, 2X/DAY FOR 3 MONTHS
     Route: 048
     Dates: start: 202109

REACTIONS (6)
  - Hydrocephalus [Unknown]
  - Blood pressure increased [Unknown]
  - Neoplasm progression [Unknown]
  - Magnetic resonance imaging head abnormal [Unknown]
  - Product dose omission in error [Unknown]
  - Respiratory rate increased [Unknown]

NARRATIVE: CASE EVENT DATE: 20221101
